FAERS Safety Report 15644781 (Version 3)
Quarter: 2019Q1

REPORT INFORMATION
  Report Type: Spontaneous
  Country: US (occurrence: US)
  Receive Date: 20181121
  Receipt Date: 20190129
  Transmission Date: 20190417
  Serious: Yes (Other)
  Sender: FDA-Public Use
  Company Number: US-GLAXOSMITHKLINE-US2018GSK209820

PATIENT
  Age: 61 Year
  Sex: Female

DRUGS (1)
  1. BENLYSTA [Suspect]
     Active Substance: BELIMUMAB
     Indication: SYSTEMIC LUPUS ERYTHEMATOSUS
     Route: 058

REACTIONS (11)
  - Musculoskeletal disorder [Unknown]
  - Arthritis [Unknown]
  - Malaise [Unknown]
  - Contusion [Unknown]
  - Wrong technique in device usage process [Unknown]
  - Pain [Unknown]
  - Chills [Unknown]
  - Insomnia [Unknown]
  - Rash [Unknown]
  - Systemic lupus erythematosus [Unknown]
  - Pruritus [Unknown]
